FAERS Safety Report 7134592-9 (Version None)
Quarter: 2010Q4

REPORT INFORMATION
  Report Type: 
  Country: None (occurrence: None)
  Receive Date: 20101203
  Receipt Date: 20101124
  Transmission Date: 20110411
  Serious: Yes (Hospitalization)
  Sender: FDA-Public Use
  Company Number: IE-SANOFI-AVENTIS-2010SA072419

PATIENT
  Age: 67 Year
  Sex: Male

DRUGS (5)
  1. TAXOTERE [Suspect]
     Indication: PROSTATE CANCER
     Route: 051
     Dates: start: 20101103, end: 20101103
  2. BLINDED THERAPY [Suspect]
     Indication: PROSTATE CANCER
     Route: 048
     Dates: start: 20101103, end: 20101112
  3. PREDNISONE [Suspect]
     Indication: PROSTATE CANCER
     Route: 048
     Dates: start: 20101103
  4. OXYNORM [Concomitant]
     Dates: start: 20101021, end: 20101105
  5. ZOMETA [Concomitant]
     Dates: start: 20100902

REACTIONS (5)
  - CONSTIPATION [None]
  - FAECALOMA [None]
  - FATIGUE [None]
  - MIXED INCONTINENCE [None]
  - URINARY RETENTION [None]
